FAERS Safety Report 8035961-5 (Version None)
Quarter: 2011Q4

REPORT INFORMATION
  Report Type: 
  Country: None (occurrence: None)
  Receive Date: 20111202
  Receipt Date: 20110913
  Transmission Date: 20120403
  Serious: No
  Sender: FDA-Public Use
  Company Number: PHEH2011US04634

PATIENT
  Age: 56 Year
  Sex: Male
  Weight: 117.9 kg

DRUGS (1)
  1. FANAPT [Suspect]
     Indication: SCHIZOPHRENIA
     Dosage: 4 MG, QD, ORAL
     Route: 048
     Dates: start: 20110826, end: 20110829

REACTIONS (2)
  - FALL [None]
  - DIZZINESS [None]
